FAERS Safety Report 6902240-6 (Version None)
Quarter: 2010Q3

REPORT INFORMATION
  Report Type: 
  Country: None (occurrence: None)
  Receive Date: 20100803
  Receipt Date: 20080505
  Transmission Date: 20110219
  Serious: No
  Sender: FDA-Public Use
  Company Number: US-PFIZER INC-2008039088

PATIENT
  Sex: Female
  Weight: 77.3 kg

DRUGS (9)
  1. LYRICA [Suspect]
     Indication: ARTHRALGIA
     Route: 048
     Dates: start: 20080101, end: 20080401
  2. SYNTHROID [Concomitant]
  3. WARFARIN SODIUM [Concomitant]
  4. LIDODERM [Concomitant]
  5. ALLOPURINOL [Concomitant]
  6. TOPROL-XL [Concomitant]
  7. DILTIAZEM [Concomitant]
  8. ULTRAM [Concomitant]
  9. CENTRUM [Concomitant]

REACTIONS (1)
  - OEDEMA PERIPHERAL [None]
